FAERS Safety Report 8217005 (Version 2)
Quarter: 2014Q2

REPORT INFORMATION
  Report Type: Spontaneous
  Country: US (occurrence: US)
  Receive Date: 20111101
  Receipt Date: 20140620
  Transmission Date: 20141212
  Serious: Yes (Hospitalization)
  Sender: FDA-Public Use
  Company Number: US-UCBSA-044319

PATIENT
  Age: 29 Year
  Sex: Female

DRUGS (2)
  1. VIMPAT [Suspect]
  2. KEPPRA [Suspect]
     Dates: start: 2004

REACTIONS (4)
  - Generalised tonic-clonic seizure [Unknown]
  - Complex partial seizures [Unknown]
  - Vomiting [Unknown]
  - Convulsion [Unknown]
